FAERS Safety Report 18522433 (Version 3)
Quarter: 2021Q1

REPORT INFORMATION
  Report Type: Spontaneous
  Country: US (occurrence: US)
  Receive Date: 20201119
  Receipt Date: 20210122
  Transmission Date: 20210419
  Serious: No
  Sender: FDA-Public Use
  Company Number: US-GLAXOSMITHKLINE-US2020AMR227318

PATIENT
  Sex: Female

DRUGS (2)
  1. ZEJULA [Suspect]
     Active Substance: NIRAPARIB
     Indication: OVARIAN CANCER
     Dosage: 200 MG, QD
     Dates: start: 20201023, end: 20201204
  2. ZEJULA [Suspect]
     Active Substance: NIRAPARIB
     Dosage: 200 MG, QD

REACTIONS (9)
  - Haemoglobin decreased [Unknown]
  - Platelet count decreased [Unknown]
  - Nausea [Unknown]
  - Therapy cessation [Unknown]
  - Decreased appetite [Unknown]
  - Fatigue [Unknown]
  - Illness [Unknown]
  - Headache [Unknown]
  - Asthenia [Unknown]
